FAERS Safety Report 17861782 (Version 1)
Quarter: 2020Q2

REPORT INFORMATION
  Report Type: Report from Study
  Country: US (occurrence: US)
  Receive Date: 20200604
  Receipt Date: 20200604
  Transmission Date: 20200714
  Serious: Yes (Hospitalization, Other)
  Sender: FDA-Public Use
  Company Number: US-PFIZER INC-2020128564

PATIENT
  Age: 57 Year
  Sex: Female

DRUGS (1)
  1. IBRANCE [Suspect]
     Active Substance: PALBOCICLIB
     Indication: BREAST CANCER FEMALE
     Dosage: 125 MG, CYCLIC (21 DAYS ON, 7 DAYS OFF)
     Route: 048
     Dates: start: 20200317

REACTIONS (18)
  - Epistaxis [Recovered/Resolved]
  - Peripheral swelling [Recovered/Resolved]
  - Nausea [Not Recovered/Not Resolved]
  - Sepsis [Recovered/Resolved]
  - Wheezing [Unknown]
  - Dyspnoea [Unknown]
  - Musculoskeletal chest pain [Recovering/Resolving]
  - Erythema [Recovered/Resolved]
  - Breast pain [Recovering/Resolving]
  - Axillary pain [Recovering/Resolving]
  - Tumour marker increased [Unknown]
  - Drug hypersensitivity [Unknown]
  - Pulmonary oedema [Unknown]
  - Cough [Not Recovered/Not Resolved]
  - Pleural effusion [Recovering/Resolving]
  - Alopecia [Not Recovered/Not Resolved]
  - Headache [Unknown]
  - Chest pain [Recovering/Resolving]

NARRATIVE: CASE EVENT DATE: 2020
